FAERS Safety Report 9456031 (Version 1)
Quarter: 2013Q3

REPORT INFORMATION
  Report Type: Spontaneous
  Country: US (occurrence: US)
  Receive Date: 20130813
  Receipt Date: 20130813
  Transmission Date: 20140515
  Serious: Yes (Other)
  Sender: FDA-Public Use
  Company Number: PHHY2013US084209

PATIENT
  Age: 59 Year
  Sex: Female

DRUGS (4)
  1. HEPARIN [Suspect]
     Indication: DEEP VEIN THROMBOSIS
     Dosage: 5000 DF, TID
     Route: 058
  2. ARGATROBAN [Suspect]
     Indication: HEPARIN-INDUCED THROMBOCYTOPENIA
     Dosage: 2 UG/KG/MIN
  3. ARGATROBAN [Suspect]
     Dosage: 7 UG/KG/MIN
  4. ARGATROBAN [Suspect]
     Dosage: 2.75 UG/KG/MIN

REACTIONS (5)
  - Pulmonary embolism [Recovered/Resolved]
  - Heparin-induced thrombocytopenia [Recovered/Resolved]
  - Platelet count decreased [Recovered/Resolved]
  - Drug resistance [Unknown]
  - Drug level increased [Unknown]
